FAERS Safety Report 16781854 (Version 1)
Quarter: 2019Q3

REPORT INFORMATION
  Report Type: Spontaneous
  Country: IT (occurrence: IT)
  Receive Date: 20190906
  Receipt Date: 20190906
  Transmission Date: 20191005
  Serious: Yes (Other)
  Sender: FDA-Public Use
  Company Number: IT-BRISTOL-MYERS SQUIBB COMPANY-BMS-2019-084144

PATIENT
  Age: 80 Year
  Sex: Male
  Weight: 68 kg

DRUGS (1)
  1. NIVOLUMAB [Suspect]
     Active Substance: NIVOLUMAB
     Indication: LUNG ADENOCARCINOMA
     Route: 065
     Dates: start: 20181201, end: 20190724

REACTIONS (1)
  - Guttate psoriasis [Unknown]

NARRATIVE: CASE EVENT DATE: 20190724
